FAERS Safety Report 8898331 (Version 1)
Quarter: 2012Q4

REPORT INFORMATION
  Report Type: 
  Country: US (occurrence: US)
  Receive Date: 20121108
  Receipt Date: 20121108
  Transmission Date: 20130627
  Serious: No
  Sender: FDA-Public Use
  Company Number: US-AMGEN-USASP2012030143

PATIENT
  Sex: Female

DRUGS (3)
  1. ENBREL [Suspect]
     Indication: PSORIASIS
     Dosage: 50 mg, qwk
     Dates: start: 20101015
  2. ENBREL [Suspect]
     Indication: COLITIS
  3. ENBREL [Suspect]
     Indication: DIVERTICULITIS

REACTIONS (1)
  - Colitis [Recovered/Resolved]
